FAERS Safety Report 15928922 (Version 1)
Quarter: 2019Q1

REPORT INFORMATION
  Report Type: Report from Study
  Country: US (occurrence: US)
  Receive Date: 20190206
  Receipt Date: 20190206
  Transmission Date: 20190417
  Serious: Yes (Hospitalization, Other)
  Sender: FDA-Public Use
  Company Number: PHHY2017US168817

PATIENT
  Age: 76 Year
  Sex: Male
  Weight: 47.4 kg

DRUGS (4)
  1. RIFABUTIN. [Concomitant]
     Active Substance: RIFABUTIN
     Indication: MYCOBACTERIUM AVIUM COMPLEX INFECTION
     Dosage: 100 MG, UNK
     Route: 048
     Dates: start: 20171130
  2. LAMPRENE [Suspect]
     Active Substance: CLOFAZIMINE
     Indication: MYCOBACTERIUM AVIUM COMPLEX INFECTION
     Dosage: 100 MG, UNK
     Route: 048
     Dates: start: 20171130
  3. RIFABUTIN. [Concomitant]
     Active Substance: RIFABUTIN
     Dosage: 150 MG, UNK
     Route: 048
     Dates: start: 20180110
  4. FAMOTIDINE. [Concomitant]
     Active Substance: FAMOTIDINE
     Indication: PRODUCT USED FOR UNKNOWN INDICATION
     Dosage: 10 MG, UNK
     Route: 048
     Dates: end: 20180320

REACTIONS (13)
  - Bronchiectasis [Recovered/Resolved]
  - Decreased appetite [Not Recovered/Not Resolved]
  - Weight decreased [Recovered/Resolved]
  - Back pain [Recovered/Resolved]
  - Pneumonia [Recovered/Resolved]
  - Spinal compression fracture [Not Recovered/Not Resolved]
  - Back pain [Recovering/Resolving]
  - Faeces discoloured [Not Recovered/Not Resolved]
  - Pneumonia [Not Recovered/Not Resolved]
  - Abdominal pain upper [Recovered/Resolved]
  - Weight decreased [Not Recovered/Not Resolved]
  - Chronic obstructive pulmonary disease [Recovered/Resolved]
  - Chronic obstructive pulmonary disease [Recovered/Resolved]

NARRATIVE: CASE EVENT DATE: 20171007
